FAERS Safety Report 8515569 (Version 2)
Quarter: 2013Q1

REPORT INFORMATION
  Report Type: Spontaneous
  Country: US (occurrence: US)
  Receive Date: 20120417
  Receipt Date: 20130124
  Transmission Date: 20140127
  Serious: Yes (Other)
  Sender: FDA-Public Use
  Company Number: US-PFIZER INC-2012090368

PATIENT
  Age: 60 Year
  Sex: Female

DRUGS (12)
  1. LYRICA [Suspect]
     Dosage: 150 MG, TAKE 1 BID
  2. LEVOXYL [Concomitant]
     Dosage: UNK
  3. VICTOZA [Concomitant]
     Dosage: UNK
  4. LEVEMIR [Concomitant]
     Dosage: UNK
  5. DIOVAN HCT [Concomitant]
     Dosage: UNK
  6. LOVAZA [Concomitant]
     Dosage: UNK
  7. AMARYL [Concomitant]
     Dosage: UNK
  8. SYMBICORT [Concomitant]
     Dosage: UNK
  9. NOVOLOG [Concomitant]
     Dosage: UNK
  10. LANTUS [Concomitant]
     Dosage: UNK
  11. LISINOPRIL [Concomitant]
     Dosage: UNK
  12. ALBUTEROL [Concomitant]
     Dosage: UNK

REACTIONS (6)
  - Diabetes mellitus [Unknown]
  - Hypertension [Unknown]
  - Asthma [Unknown]
  - Hypothyroidism [Unknown]
  - Hyperlipidaemia [Unknown]
  - Neuropathy peripheral [Unknown]
